FAERS Safety Report 6417249-9 (Version None)
Quarter: 2009Q4

REPORT INFORMATION
  Report Type: 
  Country: None (occurrence: None)
  Receive Date: 20091026
  Receipt Date: 20091013
  Transmission Date: 20100525
  Serious: Yes (Disabling)
  Sender: FDA-Public Use
  Company Number: 20090463

PATIENT
  Sex: Female

DRUGS (4)
  1. VENOFER [Suspect]
     Indication: ANAEMIA
     Dosage: INTRAVENOUS 200 MG WEEKLY
     Route: 042
     Dates: start: 20090828, end: 20090911
  2. AMLODIPINE [Concomitant]
  3. FRUSEMIDE [Concomitant]
  4. PREMARIN [Concomitant]

REACTIONS (3)
  - CONTUSION [None]
  - INTERNATIONAL NORMALISED RATIO INCREASED [None]
  - THROMBOSIS [None]
